FAERS Safety Report 9416864 (Version 1)
Quarter: 2013Q3

REPORT INFORMATION
  Report Type: Spontaneous
  Country: US (occurrence: None)
  Receive Date: 20130719
  Receipt Date: 20130719
  Transmission Date: 20140515
  Serious: Yes (Death)
  Sender: FDA-Public Use
  Company Number: SYM-2013-06228

PATIENT
  Sex: 0

DRUGS (3)
  1. FLUOROURACIL (FLUOROURACIL) (FLUOROURACIL) [Suspect]
     Indication: OESOPHAGEAL ADENOCARCINOMA
  2. OXALIPLATIN (OXALIPLATIN) (OXALIPLATIN) [Suspect]
     Indication: OESOPHAGEAL ADENOCARCINOMA
  3. EPIRUBICIN (EPIRUBICIN) (EPIRUBICIN) [Suspect]
     Indication: OESOPHAGEAL ADENOCARCINOMA

REACTIONS (1)
  - Death [None]
